FAERS Safety Report 21920600 (Version 2)
Quarter: 2023Q2

REPORT INFORMATION
  Report Type: Spontaneous
  Country: US (occurrence: US)
  Receive Date: 20230127
  Receipt Date: 20230620
  Transmission Date: 20230722
  Serious: No
  Sender: FDA-Public Use
  Company Number: US-PFIZER INC-PV202300014261

PATIENT
  Age: 58 Year
  Sex: Female

DRUGS (1)
  1. XELJANZ XR [Suspect]
     Active Substance: TOFACITINIB CITRATE
     Dosage: 11 MG

REACTIONS (8)
  - Therapeutic product effect delayed [Unknown]
  - Pain [Unknown]
  - Pain in extremity [Unknown]
  - Musculoskeletal stiffness [Recovering/Resolving]
  - Fatigue [Unknown]
  - Blood cholesterol increased [Unknown]
  - Therapeutic product effect incomplete [Unknown]
  - Visual impairment [Unknown]
